FAERS Safety Report 7343064-8 (Version None)
Quarter: 2011Q1

REPORT INFORMATION
  Report Type: 
  Country: None (occurrence: None)
  Receive Date: 20110301
  Receipt Date: 20110218
  Transmission Date: 20110831
  Serious: Yes (Death, Hospitalization, Other)
  Sender: FDA-Public Use
  Company Number: 2011MA001571

PATIENT
  Age: 87 Year
  Sex: Female
  Weight: 50.8 kg

DRUGS (12)
  1. LEVOTHYROXINE SODIUM [Concomitant]
  2. ZOPICLONE [Concomitant]
  3. DALTEPARIN (NO PREF. NAME) [Suspect]
     Indication: DEEP VEIN THROMBOSIS
     Dosage: 5000 IU;QD;SQ
     Dates: start: 20100807
  4. PARACETAMOL [Concomitant]
  5. OMEPRAZOLE [Concomitant]
  6. MOVIPREP [Concomitant]
  7. DIHYDROCODEINE BITARTRATE INJ [Concomitant]
  8. TRIMETHOPRIM [Suspect]
     Indication: URINARY TRACT INFECTION
     Dosage: 200 MG;BID
     Dates: start: 20100918
  9. FUROSEMIDE [Concomitant]
  10. WARFARIN (WARFARIN) [Suspect]
     Indication: DEEP VEIN THROMBOSIS
     Dosage: 3 MG
     Dates: start: 20100831, end: 20101007
  11. IBUPROFEN [Suspect]
     Indication: PRODUCT USED FOR UNKNOWN INDICATION
     Dosage: 600 MG;TID;PO
     Route: 048
     Dates: start: 20080101, end: 20100919
  12. FENTANYL [Concomitant]

REACTIONS (10)
  - INJECTION SITE HAEMORRHAGE [None]
  - LOWER RESPIRATORY TRACT INFECTION [None]
  - HAEMOGLOBIN DECREASED [None]
  - ARTHRALGIA [None]
  - URINARY TRACT INFECTION [None]
  - DEEP VEIN THROMBOSIS [None]
  - INTERNATIONAL NORMALISED RATIO INCREASED [None]
  - CONTUSION [None]
  - INADEQUATE ANALGESIA [None]
  - PLATELET COUNT INCREASED [None]
